FAERS Safety Report 6266956-X (Version None)
Quarter: 2009Q3

REPORT INFORMATION
  Report Type: 
  Country: None (occurrence: None)
  Receive Date: 20090714
  Receipt Date: 20090708
  Transmission Date: 20100115
  Serious: Yes (Death, Hospitalization)
  Sender: FDA-Public Use
  Company Number: DE-ROCHE-631694

PATIENT
  Age: 61 Year
  Sex: Female
  Weight: 55 kg

DRUGS (13)
  1. CAPECITABINE [Suspect]
     Dosage: 3X 500 MG A.M AND PM
     Route: 048
     Dates: start: 20070530, end: 20070907
  2. SIMVASTATIN [Concomitant]
  3. ZOPICLON [Concomitant]
     Indication: INSOMNIA
  4. BONDRONAT [Concomitant]
     Dates: start: 20070521
  5. OMEPRAZOL [Concomitant]
     Dosage: OTHER INDICATION: STOMACH PAIN
     Dates: start: 20070604
  6. TRANSTEC [Concomitant]
     Indication: BONE PAIN
     Dates: start: 20070611
  7. HYDROCORTISON [Concomitant]
     Dosage: DRUG NAME: HYDROCORTISON 5%
     Dates: start: 20070620
  8. BISOPROLOL FUMARATE [Concomitant]
     Indication: HYPERTENSION
     Dates: start: 20070604
  9. MCP [Concomitant]
     Indication: VOMITING
     Dates: start: 20070604
  10. ONDANSETRON [Concomitant]
     Indication: VOMITING
     Dates: start: 20070604
  11. LAXOBERAL [Concomitant]
     Indication: CONSTIPATION
     Dates: start: 20070611
  12. 1 CONCOMITANT DRUG [Concomitant]
     Indication: CONSTIPATION
     Dosage: DRUG NAME REPORTED AS: CLYZERIN
     Dates: start: 20070611
  13. PYRILAX [Concomitant]
     Indication: CONSTIPATION
     Dates: start: 20070611

REACTIONS (2)
  - BREAST CANCER METASTATIC [None]
  - DIARRHOEA [None]
